FAERS Safety Report 5446311-2 (Version None)
Quarter: 2007Q3

REPORT INFORMATION
  Report Type: 
  Country: None (occurrence: None)
  Receive Date: 20070907
  Receipt Date: 20070904
  Transmission Date: 20080115
  Serious: Yes (Other)
  Sender: FDA-Public Use
  Company Number: FR-ASTRAZENECA-2007CG00141

PATIENT
  Age: 27427 Day
  Sex: Female
  Weight: 50 kg

DRUGS (1)
  1. ARIMIDEX [Suspect]
     Indication: BREAST CANCER
     Route: 048
     Dates: start: 20060615, end: 20070115

REACTIONS (8)
  - ARTHRALGIA [None]
  - CATARACT [None]
  - FATIGUE [None]
  - HOT FLUSH [None]
  - INITIAL INSOMNIA [None]
  - MYALGIA [None]
  - TEMPERATURE REGULATION DISORDER [None]
  - VITREOUS DETACHMENT [None]
